FAERS Safety Report 4426166-5 (Version None)
Quarter: 2004Q3

REPORT INFORMATION
  Report Type: 
  Country: None (occurrence: None)
  Receive Date: 20040811
  Receipt Date: 20040802
  Transmission Date: 20050211
  Serious: Yes (Other)
  Sender: FDA-Public Use
  Company Number: 208111

PATIENT
  Age: 12 Year
  Sex: Male
  Weight: 50.3 kg

DRUGS (8)
  1. XOLAIR [Suspect]
     Indication: ASTHMA
     Dosage: 375 MG, Q2W, SUBCUTANEOUS
     Route: 058
     Dates: start: 20030101
  2. FLONASE [Concomitant]
  3. ZYRTEC [Concomitant]
  4. NASACORT [Concomitant]
  5. SINGULAIR [Concomitant]
  6. PREVACID [Concomitant]
  7. ALLEGRA [Concomitant]
  8. ASTELIN [Concomitant]

REACTIONS (3)
  - CHORIORETINOPATHY [None]
  - MACULOPATHY [None]
  - SCOTOMA [None]
